FAERS Safety Report 8607691 (Version 2)
Quarter: 2013Q2

REPORT INFORMATION
  Report Type: Spontaneous
  Country: US (occurrence: US)
  Receive Date: 20120611
  Receipt Date: 20130618
  Transmission Date: 20140414
  Serious: Yes (Hospitalization, Disabling, Other)
  Sender: FDA-Public Use
  Company Number: US-ASTRAZENECA-2012SE35260

PATIENT
  Age: 45 Year
  Sex: Male

DRUGS (23)
  1. NEXIUM [Suspect]
     Indication: GASTROOESOPHAGEAL REFLUX DISEASE
     Dosage: ONCE IN A DAY
     Route: 048
     Dates: start: 2001, end: 2012
  2. NEXIUM [Suspect]
     Indication: GASTROOESOPHAGEAL REFLUX DISEASE
     Dosage: TWO TIMES A DAY
     Route: 048
  3. NEXIUM [Suspect]
     Indication: GASTROOESOPHAGEAL REFLUX DISEASE
     Route: 048
     Dates: start: 20111026
  4. PRILOSEC [Suspect]
     Route: 048
  5. PROTONIX [Concomitant]
  6. PREVACID [Concomitant]
  7. ACIPHEX [Concomitant]
  8. ZANTAC [Concomitant]
  9. TAGAMET [Concomitant]
  10. PEPCID [Concomitant]
  11. MYLANTA [Concomitant]
  12. TUMS [Concomitant]
  13. ROLAIDS [Concomitant]
  14. ADVAIR [Concomitant]
     Indication: CHRONIC OBSTRUCTIVE PULMONARY DISEASE
  15. ADVAIR [Concomitant]
     Indication: CHRONIC OBSTRUCTIVE PULMONARY DISEASE
     Dosage: 250/50 MCG
     Dates: start: 20111026
  16. COMBIVENT [Concomitant]
     Indication: CHRONIC OBSTRUCTIVE PULMONARY DISEASE
  17. IBUPROFEN [Concomitant]
     Indication: ARTHRITIS
  18. ALLOPURINOL [Concomitant]
     Indication: GOUT
     Route: 048
     Dates: start: 20120105
  19. HYDROCODONE [Concomitant]
     Indication: PAIN
  20. BENAZEPRIL/HCTZ [Concomitant]
     Dosage: 20/12.5 MG
     Route: 048
     Dates: start: 20111026
  21. ALPRAZOLAM [Concomitant]
     Route: 048
     Dates: start: 20111216
  22. CARAFATE [Concomitant]
     Dosage: 1 GM/ 10 ML
     Route: 048
     Dates: start: 20120208
  23. MAG-OXIDE [Concomitant]
     Route: 048
     Dates: start: 20120730

REACTIONS (9)
  - Arthropathy [Unknown]
  - Muscle strain [Unknown]
  - Osteopenia [Unknown]
  - Oesophageal carcinoma [Unknown]
  - Osteoporosis [Unknown]
  - Angina pectoris [Unknown]
  - Bone pain [Unknown]
  - Calcium deficiency [Unknown]
  - Hand fracture [Unknown]
